FAERS Safety Report 19419779 (Version 4)
Quarter: 2021Q3

REPORT INFORMATION
  Report Type: Report from Study
  Country: AR (occurrence: AR)
  Receive Date: 20210615
  Receipt Date: 20210727
  Transmission Date: 20211014
  Serious: Yes (Hospitalization)
  Sender: FDA-Public Use
  Company Number: AR-JNJFOC-20210624277

PATIENT
  Age: 56 Year
  Sex: Female
  Weight: 61.4 kg

DRUGS (1)
  1. ESKETAMINE [Suspect]
     Active Substance: ESKETAMINE
     Indication: DEPRESSION
     Dosage: MOST RECENT DOSE 01?JUN?2021 10:20
     Dates: start: 20171111, end: 20210601

REACTIONS (1)
  - Intracranial aneurysm [Recovered/Resolved]

NARRATIVE: CASE EVENT DATE: 20210608
